FAERS Safety Report 20551688 (Version 1)
Quarter: 2022Q1

REPORT INFORMATION
  Report Type: Spontaneous
  Country: DE (occurrence: DE)
  Receive Date: 20220304
  Receipt Date: 20220304
  Transmission Date: 20220423
  Serious: Yes (Hospitalization, Other)
  Sender: FDA-Public Use
  Company Number: DE-TEVA-2022-DE-2010938

PATIENT
  Age: 69 Year
  Sex: Male
  Weight: 101 kg

DRUGS (6)
  1. CLOPIDOGREL [Suspect]
     Active Substance: CLOPIDOGREL BISULFATE
     Route: 065
     Dates: start: 201804, end: 20200327
  2. PHENPROCOUMON [Suspect]
     Active Substance: PHENPROCOUMON
     Route: 065
  3. FERRO-SANOL DUODENAL [Concomitant]
     Active Substance: FERROUS GLYCINE SULFATE
     Route: 065
  4. ASPIRIN [Concomitant]
     Active Substance: ASPIRIN
     Route: 065
  5. Semaglutide B [Concomitant]
     Route: 065
  6. PLACEBO [Concomitant]
     Active Substance: UNSPECIFIED INGREDIENT
     Indication: Type 2 diabetes mellitus
     Route: 065

REACTIONS (7)
  - Large intestine polyp [Not Recovered/Not Resolved]
  - Small intestine polyp [Not Recovered/Not Resolved]
  - Diverticulum [Not Recovered/Not Resolved]
  - Hiatus hernia [Not Recovered/Not Resolved]
  - Iron deficiency anaemia [Recovered/Resolved]
  - Gingival bleeding [Recovered/Resolved]
  - Melaena [Not Recovered/Not Resolved]

NARRATIVE: CASE EVENT DATE: 20200322
